FAERS Safety Report 6983659-4 (Version None)
Quarter: 2010Q3

REPORT INFORMATION
  Report Type: 
  Country: None (occurrence: None)
  Receive Date: 20100914
  Receipt Date: 20081201
  Transmission Date: 20110219
  Serious: Yes (Hospitalization)
  Sender: FDA-Public Use
  Company Number: US-WYE-H07035008

PATIENT
  Age: 75 Year
  Sex: Female
  Weight: 94.89 kg

DRUGS (11)
  1. ADVIL LIQUI-GELS [Suspect]
     Indication: ARTHRITIS
     Dosage: 1 CAPLET TWICE PER DAY
     Route: 048
     Dates: start: 20081001, end: 20081130
  2. SYNTHROID [Concomitant]
     Dosage: UNKNOWN
     Route: 048
  3. COZAAR [Concomitant]
     Dosage: UNKNOWN
     Route: 048
  4. AMLODIPINE [Concomitant]
     Dosage: UNKNOWN
     Route: 048
  5. FLOVENT [Concomitant]
     Dosage: UNKNOWN
     Route: 055
  6. ALBUTEROL [Concomitant]
     Dosage: UNKNOWN
     Route: 055
  7. CALCIUM [Concomitant]
     Dosage: UNKNOWN
     Route: 048
  8. CENTRUM SILVER [Concomitant]
     Dosage: UNKNOWN
     Route: 048
  9. VITAMIN E [Concomitant]
     Dosage: UNKNOWN
     Route: 048
  10. ADVAIR DISKUS 100/50 [Concomitant]
     Indication: PRODUCT USED FOR UNKNOWN INDICATION
     Dosage: UNKNOWN
     Route: 055
  11. GLIPIZIDE [Concomitant]
     Dosage: UNKNOWN
     Route: 048

REACTIONS (2)
  - ASTHMA [None]
  - CONDITION AGGRAVATED [None]
